FAERS Safety Report 7708526-X (Version None)
Quarter: 2011Q3

REPORT INFORMATION
  Report Type: 
  Country: None (occurrence: None)
  Receive Date: 20110824
  Receipt Date: 20110824
  Transmission Date: 20111222
  Serious: Yes (Hospitalization)
  Sender: FDA-Public Use
  Company Number: None

PATIENT
  Sex: Male
  Weight: 74.3899 kg

DRUGS (4)
  1. SINEMET [Suspect]
     Indication: HALLUCINATION
     Dosage: 1 AT 7, 1 @ 11, 1/2 AT 4 PM PO
     Route: 048
     Dates: start: 20110619
  2. SINEMET [Suspect]
     Indication: AGITATION
     Dosage: 1 AT 7, 1 @ 11, 1/2 AT 4 PM PO
     Route: 048
     Dates: start: 20110619
  3. CELEXA [Concomitant]
  4. METOPROLOL [Concomitant]

REACTIONS (3)
  - CONFUSIONAL STATE [None]
  - AGITATION [None]
  - DELUSION [None]
